FAERS Safety Report 8795307 (Version 2)
Quarter: 2012Q4

REPORT INFORMATION
  Report Type: 
  Country: CN (occurrence: CN)
  Receive Date: 20120918
  Receipt Date: 20121001
  Transmission Date: 20130627
  Serious: Yes (Other)
  Sender: FDA-Public Use
  Company Number: CN-ROCHE-1129363

PATIENT
  Sex: Female

DRUGS (2)
  1. HERCEPTIN [Suspect]
     Indication: BREAST CANCER RECURRENT
     Route: 065
     Dates: start: 2007
  2. HERCEPTIN [Suspect]
     Route: 065
     Dates: start: 201209

REACTIONS (1)
  - Breast cancer metastatic [Not Recovered/Not Resolved]
